FAERS Safety Report 6190805-1 (Version None)
Quarter: 2009Q2

REPORT INFORMATION
  Report Type: 
  Country: None (occurrence: None)
  Receive Date: 20090514
  Receipt Date: 20090507
  Transmission Date: 20091009
  Serious: Yes (Other)
  Sender: FDA-Public Use
  Company Number: PHEH2007US12631

PATIENT
  Sex: Female

DRUGS (8)
  1. AREDIA [Suspect]
     Indication: MULTIPLE MYELOMA
     Dosage: 90MG MONTHLY
  2. ZOMETA [Suspect]
     Indication: MULTIPLE MYELOMA
     Dosage: 4MG MONTHLY
     Route: 042
     Dates: end: 20050601
  3. THALIDOMIDE [Concomitant]
     Dosage: 100 MG, UNK
     Dates: start: 20060119, end: 20071001
  4. HYDROCODONE BITARTRATE [Concomitant]
  5. MORPHINE SULFATE [Concomitant]
  6. DECADRON [Concomitant]
     Dosage: 40 MG, UNK
     Dates: start: 20060119
  7. CATAPRES-TTS-1 [Concomitant]
     Dosage: 2 PATCH WEEKLY
     Route: 062
     Dates: start: 19951108
  8. CHEMOTHERAPEUTICS NOS [Concomitant]

REACTIONS (48)
  - ANAEMIA [None]
  - ANHEDONIA [None]
  - ANXIETY [None]
  - BIOPSY GINGIVAL [None]
  - BLADDER CANCER [None]
  - BLADDER OPERATION [None]
  - BONE DISORDER [None]
  - BONE PAIN [None]
  - CHILLS [None]
  - COLON OPERATION [None]
  - DEBRIDEMENT [None]
  - DEFORMITY [None]
  - DIVERTICULUM [None]
  - EMOTIONAL DISTRESS [None]
  - ERYTHEMA [None]
  - EXOSTOSIS [None]
  - GINGIVAL BLEEDING [None]
  - GINGIVAL DISORDER [None]
  - GINGIVAL OEDEMA [None]
  - GINGIVITIS [None]
  - HYPOKALAEMIA [None]
  - HYPOPHAGIA [None]
  - INTERVERTEBRAL DISC DEGENERATION [None]
  - JAW OPERATION [None]
  - LIFE EXPECTANCY SHORTENED [None]
  - LYMPHADENOPATHY [None]
  - MAXILLOFACIAL OPERATION [None]
  - MOUTH ULCERATION [None]
  - MULTIPLE MYELOMA [None]
  - OROPHARYNGEAL PAIN [None]
  - OSTEOARTHRITIS [None]
  - OSTEONECROSIS [None]
  - OSTEOPENIA [None]
  - PAIN [None]
  - PAIN IN JAW [None]
  - PLASMACYTOSIS [None]
  - PURULENCE [None]
  - PYREXIA [None]
  - SCOLIOSIS [None]
  - SINUS DISORDER [None]
  - SKIN ODOUR ABNORMAL [None]
  - SPINAL OSTEOARTHRITIS [None]
  - SPONDYLOLISTHESIS [None]
  - SURGERY [None]
  - TOOTH DISORDER [None]
  - TOOTH EXTRACTION [None]
  - TOOTHACHE [None]
  - WOUND DRAINAGE [None]
